FAERS Safety Report 6862528-4 (Version None)
Quarter: 2010Q3

REPORT INFORMATION
  Report Type: 
  Country: None (occurrence: None)
  Receive Date: 20100721
  Receipt Date: 20100715
  Transmission Date: 20110219
  Serious: Yes (Disabling)
  Sender: FDA-Public Use
  Company Number: ZA-ALLERGAN-1009028US

PATIENT
  Age: 50 Year
  Sex: Female
  Weight: 62 kg

DRUGS (2)
  1. PRED FORTE [Suspect]
     Indication: ASTHENOPIA
     Dosage: UNK
     Route: 047
     Dates: start: 20091128, end: 20091216
  2. ATENOLOL [Concomitant]
     Indication: ANXIETY
     Dosage: 25 MG, QD
     Route: 048

REACTIONS (2)
  - BLINDNESS [None]
  - INTRAOCULAR PRESSURE INCREASED [None]
